FAERS Safety Report 6396892-X (Version None)
Quarter: 2009Q4

REPORT INFORMATION
  Report Type: 
  Country: None (occurrence: None)
  Receive Date: 20091012
  Receipt Date: 20090604
  Transmission Date: 20100525
  Serious: No
  Sender: FDA-Public Use
  Company Number: US-ASTRAZENECA-2009UW14335

PATIENT

DRUGS (2)
  1. SYMBICORT [Suspect]
     Route: 055
  2. REYATAZ [Interacting]

REACTIONS (1)
  - DRUG INTERACTION [None]
